FAERS Safety Report 7033650-7 (Version None)
Quarter: 2010Q4

REPORT INFORMATION
  Report Type: 
  Country: None (occurrence: None)
  Receive Date: 20101005
  Receipt Date: 20100927
  Transmission Date: 20110411
  Serious: Yes (Death, Hospitalization)
  Sender: FDA-Public Use
  Company Number: 2010US003948

PATIENT
  Age: 38 Year
  Sex: Female
  Weight: 83 kg

DRUGS (5)
  1. PROGRAF [Suspect]
     Indication: RENAL TRANSPLANT
     Dosage: 2 MG, BID, ORAL
     Route: 048
  2. CELLCEPT [Concomitant]
  3. PREDNISONE TAB [Concomitant]
  4. INSULIN (INSULIN) INJECTION [Concomitant]
  5. INSULIN LISPRO (INSULIN LISPRO) [Concomitant]

REACTIONS (1)
  - HAEMORRHAGIC STROKE [None]
